FAERS Safety Report 8982888 (Version 1)
Quarter: 2012Q4

REPORT INFORMATION
  Report Type: Report from Study
  Country: FR (occurrence: FR)
  Receive Date: 20121221
  Receipt Date: 20121221
  Transmission Date: 20130627
  Serious: Yes (Hospitalization)
  Sender: FDA-Public Use
  Company Number: FR-BAXTER-2012BAX027248

PATIENT
  Age: 48 Year
  Sex: Female
  Weight: 60 kg

DRUGS (4)
  1. ENDOXAN 2000 MG, LYOPHILISAT POUR SOLUTION INJECTABLE [Suspect]
     Indication: BREAST CANCER
     Route: 042
  2. BEVACIZUMAB [Suspect]
     Indication: BREAST CANCER
     Route: 042
     Dates: start: 20090604
  3. FLUOROURACIL [Suspect]
     Indication: BREAST CANCER
     Route: 065
  4. EPIRUBICIN [Suspect]
     Indication: BREAST CANCER
     Route: 065

REACTIONS (1)
  - Anal abscess [Recovered/Resolved]
